FAERS Safety Report 14967075 (Version 1)
Quarter: 2018Q2

REPORT INFORMATION
  Report Type: Spontaneous
  Country: KR (occurrence: KR)
  Receive Date: 20180604
  Receipt Date: 20180604
  Transmission Date: 20180711
  Serious: No
  Sender: FDA-Public Use
  Company Number: KR-CHEPLA-C20180225

PATIENT
  Sex: Male

DRUGS (1)
  1. ALL-TRANS RETINOIC ACID [Suspect]
     Active Substance: TRETINOIN
     Indication: ACUTE PROMYELOCYTIC LEUKAEMIA
     Dosage: UNKNOWN
     Route: 065

REACTIONS (1)
  - Scrotal ulcer [Unknown]
